FAERS Safety Report 7347923-1 (Version None)
Quarter: 2011Q1

REPORT INFORMATION
  Report Type: 
  Country: None (occurrence: None)
  Receive Date: 20110221
  Receipt Date: 20110221
  Transmission Date: 20110831
  Serious: Yes (Hospitalization)
  Sender: FDA-Public Use
  Company Number: 2011SP008255

PATIENT
  Age: 57 Year
  Sex: Male

DRUGS (3)
  1. REFLEX (MIRTAZAPINE / 01293201/ ) [Suspect]
     Indication: DEPRESSION
     Dosage: 30, 15 MG, QD, PO
     Route: 048
     Dates: start: 20110120
  2. REFLEX (MIRTAZAPINE / 01293201/ ) [Suspect]
     Indication: DEPRESSION
     Dosage: 30, 15 MG, QD, PO
     Route: 048
     Dates: start: 20101008, end: 20110119
  3. ALPRAZOLAM [Concomitant]

REACTIONS (3)
  - ANAEMIA [None]
  - HAEMODIALYSIS [None]
  - RENAL FAILURE CHRONIC [None]
